FAERS Safety Report 19257428 (Version 4)
Quarter: 2021Q2

REPORT INFORMATION
  Report Type: Report from Study
  Country: None (occurrence: JP)
  Receive Date: 20210513
  Receipt Date: 20210527
  Transmission Date: 20210717
  Serious: Yes (Death)
  Sender: FDA-Public Use
  Company Number: JP-ABBVIE-21K-087-3878908-00

PATIENT
  Age: 80 Year
  Sex: Male

DRUGS (2)
  1. AZACITIDINE. [Concomitant]
     Active Substance: AZACITIDINE
     Indication: PRODUCT USED FOR UNKNOWN INDICATION
  2. VENCLEXTA [Suspect]
     Active Substance: VENETOCLAX
     Indication: ACUTE MYELOID LEUKAEMIA
     Route: 048
     Dates: start: 20210419, end: 20210425

REACTIONS (4)
  - Sepsis [Fatal]
  - Infection [Fatal]
  - C-reactive protein increased [Fatal]
  - Pancytopenia [Fatal]

NARRATIVE: CASE EVENT DATE: 20210430
